FAERS Safety Report 9530661 (Version 1)
Quarter: 2013Q3

REPORT INFORMATION
  Report Type: Spontaneous
  Country: GR (occurrence: GR)
  Receive Date: 20130918
  Receipt Date: 20130918
  Transmission Date: 20140515
  Serious: Yes (Death)
  Sender: FDA-Public Use
  Company Number: GR-009507513-1309GRC006397

PATIENT
  Age: 85 Year
  Sex: Female

DRUGS (1)
  1. DECA-DURABOLIN [Suspect]
     Dosage: 50MG/1ML

REACTIONS (3)
  - Death [Fatal]
  - Osteoporotic fracture [Unknown]
  - Asthenia [Unknown]
